FAERS Safety Report 6286794-1 (Version None)
Quarter: 2009Q3

REPORT INFORMATION
  Report Type: 
  Country: None (occurrence: None)
  Receive Date: 20090728
  Receipt Date: 20090720
  Transmission Date: 20100115
  Serious: Yes (Death, Hospitalization, Other)
  Sender: FDA-Public Use
  Company Number: US-CELGENEUS-163-C5013-09051123

PATIENT
  Sex: Male
  Weight: 91.75 kg

DRUGS (31)
  1. CC-5013 [Suspect]
     Indication: NON-HODGKIN'S LYMPHOMA
     Route: 048
     Dates: start: 20090422, end: 20090527
  2. CC-5013 [Suspect]
     Route: 048
     Dates: start: 20070618
  3. HYDROCHLOROTHIAZIDE [Concomitant]
     Indication: HYPERTENSION
     Route: 048
     Dates: start: 20050223
  4. HYDROCHLOROTHIAZIDE [Concomitant]
     Indication: VENOUS INSUFFICIENCY
  5. PERCOCET [Concomitant]
     Dosage: 10/355MG
     Route: 048
     Dates: start: 20090121
  6. PERCOCET [Concomitant]
  7. VICODIN ES [Concomitant]
     Dosage: 10/660MG
     Route: 048
     Dates: start: 20090121
  8. VICODIN ES [Concomitant]
  9. CARISOPRODOL [Concomitant]
     Route: 048
     Dates: start: 20070314
  10. VITAMIN E [Concomitant]
     Indication: NUTRITIONAL SUPPORT
     Route: 048
     Dates: start: 19870101
  11. VALIUM [Concomitant]
     Indication: MUSCLE SPASMS
     Route: 048
     Dates: start: 20060606
  12. RESTORIL [Concomitant]
     Indication: INSOMNIA
     Route: 048
     Dates: start: 20050119
  13. COMPAZINE [Concomitant]
     Indication: NAUSEA
     Route: 048
     Dates: start: 20050413
  14. COMPAZINE [Concomitant]
     Indication: VOMITING
  15. MS CONTIN [Concomitant]
     Indication: PAIN MANAGEMENT
     Route: 048
     Dates: start: 20041006
  16. DIPROLENE [Concomitant]
     Indication: PROPHYLAXIS
     Route: 061
     Dates: start: 20071114
  17. SYNTHROID [Concomitant]
     Indication: HYPOTHYROIDISM
     Route: 048
     Dates: start: 20060822
  18. COLACE [Concomitant]
     Indication: CONSTIPATION
     Route: 048
     Dates: start: 20070820
  19. ONDANSETRON HCL [Concomitant]
     Indication: NAUSEA
     Route: 048
     Dates: start: 20070716
  20. ONDANSETRON HCL [Concomitant]
     Indication: VOMITING
  21. ASCORBIC ACID [Concomitant]
     Indication: NUTRITIONAL SUPPORT
     Route: 048
     Dates: start: 19870101
  22. ALFALFA [Concomitant]
     Indication: NUTRITIONAL SUPPORT
     Route: 048
     Dates: start: 20070101
  23. FLAXSEED OIL [Concomitant]
     Indication: NUTRITIONAL SUPPORT
     Route: 048
     Dates: start: 20050101
  24. METHYLSULFONYLMETHANE [Concomitant]
     Indication: NUTRITIONAL SUPPORT
     Route: 048
     Dates: start: 20050101
  25. MULTIPLE VITAMINS [Concomitant]
     Indication: NUTRITIONAL SUPPORT
     Route: 048
     Dates: start: 19870101
  26. POTASSIUM CHLORIDE [Concomitant]
     Route: 048
     Dates: start: 20070702
  27. ASPIRIN [Concomitant]
     Route: 048
     Dates: start: 20070619
  28. IBUPROFEN [Concomitant]
     Route: 048
     Dates: start: 20050223
  29. IBUPROFEN [Concomitant]
     Indication: PAIN
  30. ALBUTEROL [Concomitant]
     Indication: BRONCHOSPASM
     Route: 055
     Dates: start: 20070130
  31. AMITRIPTYLINE HCL [Concomitant]
     Indication: INSOMNIA
     Route: 048
     Dates: start: 20070119

REACTIONS (2)
  - NON-HODGKIN'S LYMPHOMA [None]
  - TUMOUR LYSIS SYNDROME [None]
